FAERS Safety Report 8799099 (Version 5)
Quarter: 2014Q2

REPORT INFORMATION
  Report Type: Report from Study
  Country: JP (occurrence: JP)
  Receive Date: 20120920
  Receipt Date: 20140403
  Transmission Date: 20141212
  Serious: Yes (Other)
  Sender: FDA-Public Use
  Company Number: JP-VERTEX PHARMACEUTICAL INC.-AE-2012-007341

PATIENT
  Age: 58 Year
  Sex: Male

DRUGS (20)
  1. VX-950 (TELAPREVIR) [Suspect]
     Indication: CHRONIC HEPATITIS C
     Dosage: 750 MG, QD
     Route: 048
     Dates: start: 20120509, end: 20120511
  2. VX-950 (TELAPREVIR) [Suspect]
     Dosage: 2250 MG, QD
     Route: 048
     Dates: start: 20120512, end: 20120514
  3. PEGINTRON [Suspect]
     Indication: CHRONIC HEPATITIS C
     Dosage: 120 ?G, QW
     Route: 058
     Dates: start: 20120509, end: 20120515
  4. PEGINTRON [Suspect]
     Dosage: 1.3 ?G/KG, QW
     Route: 058
     Dates: start: 20120522
  5. PEGINTRON [Suspect]
     Dosage: 120 ?G/KG, QW
     Route: 058
  6. PEGINTRON [Suspect]
     Dosage: 100 ?G, QW
     Route: 058
     Dates: end: 20130313
  7. REBETOL [Suspect]
     Indication: CHRONIC HEPATITIS C
     Dosage: 600 MG, QD
     Route: 048
     Dates: start: 20120509, end: 20120517
  8. REBETOL [Suspect]
     Dosage: 800 MG, QD
     Route: 048
     Dates: start: 20120518, end: 20120703
  9. REBETOL [Suspect]
     Dosage: 600 MG,QD
     Route: 048
     Dates: start: 20120704, end: 20120829
  10. REBETOL [Suspect]
     Dosage: 1400 MG/2 DAYS 800 MG/ DAY AND 600 MG/DAY, ALTERNATELY
     Route: 048
     Dates: start: 20120926
  11. TOWARAT L [Concomitant]
     Dosage: 10 MG, QD
     Route: 048
  12. BAYASPIRIN [Concomitant]
     Dosage: 100 MG, QD
     Route: 048
  13. ZYLORIC [Concomitant]
     Dosage: 100 MG, QD
     Route: 048
  14. JANUVIA [Concomitant]
     Dosage: 50 MG, QD
     Route: 048
     Dates: end: 20120516
  15. JANUVIA [Concomitant]
     Dosage: 50 MG, QD
     Route: 048
     Dates: start: 20120606
  16. VOGLIBOSE [Concomitant]
     Dosage: 0.9 MG, QD
     Route: 048
     Dates: end: 20120516
  17. VOGLIBOSE [Concomitant]
     Dosage: 0.9 MG, QD
     Route: 048
  18. HUMALOG [Concomitant]
     Dosage: 9 IU, QD
     Route: 058
     Dates: start: 20120516, end: 20120522
  19. URSO [Concomitant]
     Dosage: 900 MG, QD
     Route: 048
     Dates: end: 20120510
  20. ADALAT L [Concomitant]
     Dosage: 10 MG, QD
     Route: 048

REACTIONS (2)
  - Drug eruption [Recovering/Resolving]
  - White blood cell count decreased [Recovered/Resolved]
